FAERS Safety Report 13497406 (Version 1)
Quarter: 2017Q2

REPORT INFORMATION
  Report Type: Spontaneous
  Country: US (occurrence: US)
  Receive Date: 20170428
  Receipt Date: 20170428
  Transmission Date: 20170830
  Serious: Yes (Hospitalization)
  Sender: FDA-Public Use
  Company Number: None

PATIENT
  Age: 87 Year
  Sex: Female

DRUGS (14)
  1. MULTI VITAMIN [Concomitant]
     Active Substance: VITAMINS
  2. VITAMIN E [Concomitant]
     Active Substance: .ALPHA.-TOCOPHEROL
  3. VITAMIN B12 [Concomitant]
     Active Substance: CYANOCOBALAMIN
  4. ASMANEX [Concomitant]
     Active Substance: MOMETASONE FUROATE
  5. ESTRACE [Concomitant]
     Active Substance: ESTRADIOL
  6. CALCIUM [Concomitant]
     Active Substance: CALCIUM
  7. ESTRAZOLE [Concomitant]
  8. FLECTOR [Concomitant]
     Active Substance: DICLOFENAC EPOLAMINE
  9. HYDROCO [Concomitant]
  10. LEVOTHYROXIN [Concomitant]
     Active Substance: LEVOTHYROXINE
  11. PANTOPRAZOLE [Concomitant]
     Active Substance: PANTOPRAZOLE
  12. SYMBICORT [Concomitant]
     Active Substance: BUDESONIDE\FORMOTEROL FUMARATE DIHYDRATE
  13. EPIPEN [Concomitant]
     Active Substance: EPINEPHRINE
  14. XOLAIR [Suspect]
     Active Substance: OMALIZUMAB
     Indication: ASTHMA
     Route: 058
     Dates: start: 20120801

REACTIONS (1)
  - Osteomyelitis [None]
